FAERS Safety Report 25520939 (Version 2)
Quarter: 2025Q3

REPORT INFORMATION
  Report Type: Spontaneous
  Country: US (occurrence: US)
  Receive Date: 20250705
  Receipt Date: 20250712
  Transmission Date: 20251021
  Serious: No
  Sender: AMGEN
  Company Number: US-AMGEN-USASP2025131790

PATIENT
  Age: 25 Year

DRUGS (1)
  1. AIMOVIG [Suspect]
     Active Substance: ERENUMAB-AOOE
     Indication: Migraine prophylaxis
     Dosage: 70 MILLIGRAM, QMO
     Route: 058
     Dates: start: 20250702

REACTIONS (1)
  - Chills [Unknown]

NARRATIVE: CASE EVENT DATE: 20250702
